FAERS Safety Report 11980346 (Version 2)
Quarter: 2016Q1

REPORT INFORMATION
  Report Type: Spontaneous
  Country: GB (occurrence: GB)
  Receive Date: 20160129
  Receipt Date: 20160129
  Transmission Date: 20160526
  Serious: Yes (Hospitalization)
  Sender: FDA-Public Use
  Company Number: GB-MYLANLABS-2016M1003808

PATIENT

DRUGS (3)
  1. CREON [Concomitant]
     Active Substance: PANCRELIPASE AMYLASE\PANCRELIPASE LIPASE\PANCRELIPASE PROTEASE
     Dosage: UNK
     Route: 065
  2. MERCAPTAMINE [Suspect]
     Active Substance: CYSTEAMINE
     Indication: OFF LABEL USE
  3. MERCAPTAMINE [Suspect]
     Active Substance: CYSTEAMINE
     Indication: CROHN^S DISEASE
     Dosage: 50 MG, QD

REACTIONS (4)
  - Abdominal pain [Unknown]
  - Vomiting [Unknown]
  - Nausea [Unknown]
  - Drug prescribing error [Unknown]
